FAERS Safety Report 20211719 (Version 1)
Quarter: 2021Q4

REPORT INFORMATION
  Report Type: Spontaneous
  Country: DE (occurrence: DE)
  Receive Date: 20211221
  Receipt Date: 20211221
  Transmission Date: 20220304
  Serious: Yes (Other)
  Sender: FDA-Public Use
  Company Number: DE-MYLANLABS-2021M1094537

PATIENT
  Age: 59 Year
  Sex: Female

DRUGS (6)
  1. MYCOPHENOLATE MOFETIL [Suspect]
     Active Substance: MYCOPHENOLATE MOFETIL
     Indication: Lupus nephritis
     Dosage: 2 GRAM, QD
     Route: 065
     Dates: start: 201710
  2. MYCOPHENOLIC ACID [Suspect]
     Active Substance: MYCOPHENOLIC ACID
     Indication: Lupus nephritis
     Dosage: 720 MILLIGRAM, QD
     Route: 065
  3. PREDNISOLONE [Suspect]
     Active Substance: PREDNISOLONE
     Indication: Lupus nephritis
     Dosage: UNK, BETWEEN 5 AND 10 MG/DAY
     Route: 065
  4. IRINOTECAN [Suspect]
     Active Substance: IRINOTECAN
     Indication: Systemic lupus erythematosus
     Dosage: 50 MILLIGRAM/SQ. METER, CYCLE, FOUR CYCLES
     Route: 042
     Dates: start: 201808
  5. IRINOTECAN [Suspect]
     Active Substance: IRINOTECAN
     Dosage: 100 MILLIGRAM/SQ. METER, CYCLE, EIGHT CYCLES
     Route: 042
     Dates: start: 201808
  6. HYDROXYCHLOROQUINE [Concomitant]
     Active Substance: HYDROXYCHLOROQUINE
     Indication: Lupus nephritis
     Dosage: UNK
     Route: 065
     Dates: start: 2018

REACTIONS (3)
  - Drug ineffective [Unknown]
  - Constipation [Unknown]
  - Off label use [Unknown]

NARRATIVE: CASE EVENT DATE: 20180601
